FAERS Safety Report 10374090 (Version 1)
Quarter: 2014Q3

REPORT INFORMATION
  Report Type: Spontaneous
  Country: US (occurrence: US)
  Receive Date: 20140810
  Receipt Date: 20140810
  Transmission Date: 20150326
  Serious: Yes (Death)
  Sender: FDA-Public Use
  Company Number: US-BRISTOL-MYERS SQUIBB COMPANY-21293493

PATIENT
  Sex: Female

DRUGS (2)
  1. BYETTA [Suspect]
     Active Substance: EXENATIDE
     Indication: TYPE 2 DIABETES MELLITUS
     Dates: start: 200608
  2. VICTOZA [Suspect]
     Active Substance: LIRAGLUTIDE
     Indication: TYPE 2 DIABETES MELLITUS
     Dates: start: 201006

REACTIONS (1)
  - Pancreatic carcinoma [Fatal]

NARRATIVE: CASE EVENT DATE: 201101
